FAERS Safety Report 6742756-9 (Version None)
Quarter: 2010Q2

REPORT INFORMATION
  Report Type: 
  Country: None (occurrence: None)
  Receive Date: 20100526
  Receipt Date: 20100405
  Transmission Date: 20101027
  Serious: No
  Sender: FDA-Public Use
  Company Number: US-ABBOTT-10P-163-0637524-00

PATIENT
  Sex: Male
  Weight: 75 kg

DRUGS (3)
  1. ZEMPLAR [Suspect]
     Indication: RENAL FAILURE
     Dates: start: 20091001
  2. FOSRENOL [Concomitant]
     Indication: DRUG USE FOR UNKNOWN INDICATION
  3. UNKNOWN KIDNEY MEDICATION [Concomitant]
     Indication: DRUG USE FOR UNKNOWN INDICATION
     Dosage: NAME OF MEDICATION LOST WHEN OCC WENT DOWN

REACTIONS (1)
  - BLOOD MAGNESIUM ABNORMAL [None]
